FAERS Safety Report 24773827 (Version 2)
Quarter: 2024Q4

REPORT INFORMATION
  Report Type: Report from Study
  Country: IT (occurrence: IT)
  Receive Date: 20241225
  Receipt Date: 20241230
  Transmission Date: 20250115
  Serious: Yes (Other)
  Sender: ALEXION PHARMACEUTICALS
  Company Number: IT-ASTRAZENECA-202412GLO016247IT

PATIENT
  Age: 12 Year

DRUGS (4)
  1. SELUMETINIB [Suspect]
     Active Substance: SELUMETINIB
     Indication: Neurofibromatosis
     Dosage: UNK
  2. SELUMETINIB [Suspect]
     Active Substance: SELUMETINIB
     Dosage: UNK
     Route: 048
  3. SELUMETINIB [Suspect]
     Active Substance: SELUMETINIB
     Dosage: UNK
  4. SELUMETINIB [Suspect]
     Active Substance: SELUMETINIB
     Dosage: UNK
     Route: 048

REACTIONS (2)
  - Neutropenia [Not Recovered/Not Resolved]
  - Blood creatine phosphokinase increased [Not Recovered/Not Resolved]
